FAERS Safety Report 9400443 (Version 1)
Quarter: 2013Q3

REPORT INFORMATION
  Report Type: Spontaneous
  Country: FR (occurrence: None)
  Receive Date: 20130711
  Receipt Date: 20130711
  Transmission Date: 20140515
  Serious: Yes (Hospitalization)
  Sender: FDA-Public Use
  Company Number: ABR_01006_2013

PATIENT
  Age: 79 Year
  Sex: Male

DRUGS (10)
  1. ERYTHROMYCIN [Suspect]
     Indication: URINARY TRACT INFECTION
     Route: 042
     Dates: start: 20130430, end: 20130510
  2. AUGMENTIN [Suspect]
     Indication: URINARY TRACT INFECTION
     Route: 048
     Dates: start: 20130430, end: 20130515
  3. RULID [Concomitant]
  4. GENTAMICIN [Concomitant]
  5. PARACETAMOL [Concomitant]
  6. IMOVANE [Concomitant]
  7. DOMPERIDONE [Concomitant]
  8. DEROXAT [Concomitant]
  9. FUROSEMIDE [Concomitant]
  10. FORTUM/00559701/ [Concomitant]

REACTIONS (4)
  - Hydronephrosis [None]
  - Nephritis allergic [None]
  - Renal failure acute [None]
  - Pseudomonas infection [None]
